FAERS Safety Report 7015238-7 (Version None)
Quarter: 2010Q3

REPORT INFORMATION
  Report Type: 
  Country: None (occurrence: None)
  Receive Date: 20100927
  Receipt Date: 20100917
  Transmission Date: 20110219
  Serious: Yes (Hospitalization)
  Sender: FDA-Public Use
  Company Number: US-ABBOTT-10P-163-0671375-00

PATIENT
  Sex: Female
  Weight: 69.462 kg

DRUGS (11)
  1. DEPAKOTE [Suspect]
     Indication: MOOD SWINGS
  2. DEPAKOTE [Suspect]
     Indication: BIPOLAR I DISORDER
     Dosage: PATIENT STOPPED DEPAKOTE FOR THREE DAYS BECAUSE WAS ON GENERIC.
  3. DIVALPROEX SODIUM [Suspect]
     Indication: MOOD SWINGS
  4. DIVALPROEX SODIUM [Suspect]
     Indication: BIPOLAR I DISORDER
  5. TOPROL-XL [Concomitant]
     Indication: HYPERTENSION
  6. PRAVASTATIN [Concomitant]
     Indication: BLOOD CHOLESTEROL INCREASED
  7. NEURONTIN [Concomitant]
     Indication: PAIN IN EXTREMITY
  8. VITAMIN B1 TAB [Concomitant]
     Indication: PRODUCT USED FOR UNKNOWN INDICATION
  9. CALCIUM [Concomitant]
     Indication: PRODUCT USED FOR UNKNOWN INDICATION
  10. MAGNESIUM [Concomitant]
     Indication: PRODUCT USED FOR UNKNOWN INDICATION
  11. BUPROPION HCL [Concomitant]
     Indication: PRODUCT USED FOR UNKNOWN INDICATION

REACTIONS (8)
  - ABDOMINAL PAIN UPPER [None]
  - ALOPECIA [None]
  - BLOOD PRESSURE INCREASED [None]
  - GASTRIC DILATATION [None]
  - LIVER TENDERNESS [None]
  - PAIN [None]
  - PALPITATIONS [None]
  - TRANSIENT ISCHAEMIC ATTACK [None]
